FAERS Safety Report 9136969 (Version 1)
Quarter: 2013Q1

REPORT INFORMATION
  Report Type: Spontaneous
  Country: US (occurrence: US)
  Receive Date: 20130304
  Receipt Date: 20130304
  Transmission Date: 20140127
  Serious: No
  Sender: FDA-Public Use
  Company Number: US-ABBOTT-12P-163-0946073-00

PATIENT
  Age: 39 None
  Sex: Male

DRUGS (3)
  1. ANDROGEL 1% [Suspect]
     Indication: BLOOD TESTOSTERONE DECREASED
     Dosage: 1 IN 1 DAY- 4 PUMPS
     Dates: start: 201105
  2. ANDROGEL 1% [Suspect]
     Dosage: 6 PUMPS
     Dates: start: 2011, end: 201109
  3. ANDROGEL 1% [Suspect]
     Dosage: APPLIED EXPIRED ANDROGEL
     Dates: start: 20120614

REACTIONS (4)
  - Sluggishness [Not Recovered/Not Resolved]
  - Expired drug administered [Recovered/Resolved]
  - Therapy change [Not Recovered/Not Resolved]
  - Drug ineffective [Not Recovered/Not Resolved]
